FAERS Safety Report 10936115 (Version 2)
Quarter: 2015Q1

REPORT INFORMATION
  Report Type: Report from Study
  Country: NL (occurrence: NL)
  Receive Date: 20150320
  Receipt Date: 20150323
  Transmission Date: 20150721
  Serious: Yes (Life-Threatening)
  Sender: FDA-Public Use
  Company Number: NL-ABBVIE-15P-114-1363749-00

PATIENT
  Age: 71 Year
  Sex: Male

DRUGS (1)
  1. DUODOPA [Suspect]
     Active Substance: CARBIDOPA\LEVODOPA
     Indication: PARKINSON^S DISEASE
     Dosage: 20/5MG/ML
     Route: 050

REACTIONS (12)
  - Pneumonia [Unknown]
  - Fatigue [Unknown]
  - Device connection issue [Unknown]
  - Gait disturbance [Unknown]
  - Aphasia [Unknown]
  - Nasopharyngitis [Unknown]
  - Masked facies [Unknown]
  - Irritability [Unknown]
  - Musculoskeletal stiffness [Unknown]
  - Urinary incontinence [Unknown]
  - Tremor [Unknown]
  - Activities of daily living impaired [Unknown]
